FAERS Safety Report 15140781 (Version 1)
Quarter: 2018Q3

REPORT INFORMATION
  Report Type: Spontaneous
  Country: CZ (occurrence: CZ)
  Receive Date: 20180713
  Receipt Date: 20180713
  Transmission Date: 20181010
  Serious: Yes (Other)
  Sender: FDA-Public Use
  Company Number: PHHY2018CZ043912

PATIENT
  Sex: Male

DRUGS (1)
  1. DOXYHEXAL [Suspect]
     Active Substance: DOXYCYCLINE
     Indication: PRODUCT USED FOR UNKNOWN INDICATION
     Dosage: 200 MG, (3 TABLETS)
     Route: 048

REACTIONS (2)
  - Skin burning sensation [Unknown]
  - Erythema [Unknown]
